FAERS Safety Report 23767143 (Version 3)
Quarter: 2024Q3

REPORT INFORMATION
  Report Type: Spontaneous
  Country: FR (occurrence: FR)
  Receive Date: 20240422
  Receipt Date: 20240809
  Transmission Date: 20241016
  Serious: Yes (Life-Threatening, Hospitalization, Other)
  Sender: GLAXOSMITHKLINE
  Company Number: None

PATIENT

DRUGS (2)
  1. LAMICTAL [Suspect]
     Active Substance: LAMOTRIGINE
     Indication: Epilepsy
     Dosage: 15 MG, QD
     Route: 048
     Dates: start: 20240215, end: 20240227
  2. VALPROATE SODIUM [Suspect]
     Active Substance: VALPROATE SODIUM
     Indication: Epilepsy
     Dosage: 1 G, QD
     Route: 048
     Dates: start: 20200713

REACTIONS (2)
  - Toxic epidermal necrolysis [Recovering/Resolving]
  - Product complaint [Unknown]

NARRATIVE: CASE EVENT DATE: 20240229
